FAERS Safety Report 10594595 (Version 2)
Quarter: 2014Q4

REPORT INFORMATION
  Report Type: Spontaneous
  Country: US (occurrence: US)
  Receive Date: 20141120
  Receipt Date: 20141120
  Transmission Date: 20150529
  Serious: No
  Sender: FDA-Public Use
  Company Number: US-TEVA-442563USA

PATIENT
  Sex: Male

DRUGS (2)
  1. BUDESONIDE. [Suspect]
     Active Substance: BUDESONIDE
     Indication: PNEUMOCONIOSIS
     Dosage: 2 DOSAGE FORMS DAILY; 0.5 1 VIAL; STARTED TWO WEEKS AGO
  2. BUDESONIDE. [Suspect]
     Active Substance: BUDESONIDE
     Indication: BRONCHIECTASIS

REACTIONS (4)
  - Tension [Unknown]
  - Feeling abnormal [Recovered/Resolved]
  - Feeling jittery [Recovered/Resolved]
  - Dizziness [Recovered/Resolved]
